FAERS Safety Report 17881030 (Version 2)
Quarter: 2020Q2

REPORT INFORMATION
  Report Type: Spontaneous
  Country: BR (occurrence: BR)
  Receive Date: 20200610
  Receipt Date: 20200615
  Transmission Date: 20200714
  Serious: No
  Sender: FDA-Public Use
  Company Number: BR-PFIZER INC-2018446946

PATIENT
  Age: 73 Year
  Sex: Female
  Weight: 75 kg

DRUGS (4)
  1. LORAX [LORAZEPAM] [Suspect]
     Active Substance: LORAZEPAM
     Dosage: 1 TABLET PER DAY
  2. LORAX [LORAZEPAM] [Suspect]
     Active Substance: LORAZEPAM
     Indication: NERVOUSNESS
     Dosage: 2 MG, 1X/DAY
  3. CLOPIDOGREL [Concomitant]
     Active Substance: CLOPIDOGREL BISULFATE
     Dosage: UNK
  4. ATORVASTATIN [Concomitant]
     Active Substance: ATORVASTATIN
     Dosage: UNK

REACTIONS (3)
  - Emotional disorder [Not Recovered/Not Resolved]
  - Depressed mood [Not Recovered/Not Resolved]
  - Feeling abnormal [Not Recovered/Not Resolved]
